FAERS Safety Report 20083271 (Version 1)
Quarter: 2021Q4

REPORT INFORMATION
  Report Type: Spontaneous
  Country: FR (occurrence: FR)
  Receive Date: 20211117
  Receipt Date: 20211117
  Transmission Date: 20220303
  Serious: Yes (Hospitalization)
  Sender: FDA-Public Use
  Company Number: None

PATIENT
  Age: 95 Year
  Sex: Female
  Weight: 76 kg

DRUGS (5)
  1. DULOXETINE [Suspect]
     Active Substance: DULOXETINE
     Indication: Depression
     Dosage: 60 MILLIGRAM, QD
     Route: 048
     Dates: start: 20210901, end: 20210910
  2. DULOXETINE [Suspect]
     Active Substance: DULOXETINE
     Dosage: 30 MILLIGRAM, QD
     Route: 048
     Dates: start: 20210825, end: 20210831
  3. RISPERIDONE [Suspect]
     Active Substance: RISPERIDONE
     Indication: Delirium
     Dosage: 0.25 MILLIGRAM, QD
     Route: 048
     Dates: start: 20210827
  4. TRAMADOL [Suspect]
     Active Substance: TRAMADOL
     Indication: Depression
     Dosage: 5 GTT DROPS, Q8H, (TRAMADOL 100 MG/ML)
     Route: 048
     Dates: start: 20210826, end: 20210901
  5. TRAMADOL [Suspect]
     Active Substance: TRAMADOL
     Dosage: 10 GTT DROPS, Q8H, (TRAMADOL 100 MG/ML)
     Route: 048
     Dates: start: 20210902, end: 20210910

REACTIONS (1)
  - Serotonin syndrome [Recovering/Resolving]

NARRATIVE: CASE EVENT DATE: 20210910
